FAERS Safety Report 16496444 (Version 1)
Quarter: 2019Q2

REPORT INFORMATION
  Report Type: Spontaneous
  Country: US (occurrence: US)
  Receive Date: 20190628
  Receipt Date: 20190628
  Transmission Date: 20190711
  Serious: No
  Sender: FDA-Public Use
  Company Number: US-IGSA-SR10008598

PATIENT
  Age: 55 Year
  Sex: Female
  Weight: 45 kg

DRUGS (4)
  1. GAMUNEX-C [Suspect]
     Active Substance: HUMAN IMMUNOGLOBULIN G
     Dosage: 46 G, Q.2WK.
     Route: 042
     Dates: start: 2017
  2. GAMUNEX-C [Suspect]
     Active Substance: HUMAN IMMUNOGLOBULIN G
     Indication: CHRONIC INFLAMMATORY DEMYELINATING POLYRADICULONEUROPATHY
     Dosage: 46 G, Q.2WK.
     Route: 042
     Dates: start: 20190612, end: 20190612
  3. GAMUNEX-C [Suspect]
     Active Substance: HUMAN IMMUNOGLOBULIN G
     Dosage: 46 G, Q.2WK.
     Route: 042
     Dates: start: 20190612, end: 20190612
  4. GAMUNEX-C [Suspect]
     Active Substance: HUMAN IMMUNOGLOBULIN G
     Dosage: 46 G, Q.2WK.
     Route: 042
     Dates: start: 20190612, end: 20190612

REACTIONS (1)
  - Urticaria [Recovered/Resolved]

NARRATIVE: CASE EVENT DATE: 20190612
